FAERS Safety Report 4331491-2 (Version None)
Quarter: 2004Q1

REPORT INFORMATION
  Report Type: 
  Country: None (occurrence: None)
  Receive Date: 20040329
  Receipt Date: 20040316
  Transmission Date: 20041129
  Serious: Yes (Other)
  Sender: FDA-Public Use
  Company Number: US062318

PATIENT
  Age: 14 Year
  Sex: Male
  Weight: 40 kg

DRUGS (12)
  1. EPOGEN [Suspect]
     Indication: RENAL FAILURE CHRONIC
     Dosage: 5600 U , 3 TIMES/WK, IV
     Route: 042
     Dates: start: 20030908, end: 20031222
  2. CALCIUM CARBONATE [Concomitant]
  3. SEVELAMER HCL [Concomitant]
  4. LEVOCARNITINE [Concomitant]
  5. PARICALCITOL [Concomitant]
  6. OXYBUTYNIN [Concomitant]
  7. LABETALOL HCL [Concomitant]
  8. DOCUSATE SODIUM [Concomitant]
  9. AMLODIPINE [Concomitant]
  10. FOLIC ACID [Concomitant]
  11. IMIPRAMINE [Concomitant]
  12. ZINC GLUCONATE [Concomitant]

REACTIONS (6)
  - ANAEMIA MACROCYTIC [None]
  - ANTI-ERYTHROPOIETIN ANTIBODY POSITIVE [None]
  - BIOPSY BONE MARROW ABNORMAL [None]
  - COPPER DEFICIENCY [None]
  - CROSS SENSITIVITY REACTION [None]
  - URINARY TRACT INFECTION [None]
